FAERS Safety Report 14280811 (Version 5)
Quarter: 2023Q2

REPORT INFORMATION
  Report Type: Spontaneous
  Country: FR (occurrence: FR)
  Receive Date: 20171213
  Receipt Date: 20230403
  Transmission Date: 20230722
  Serious: Yes (Disabling, Other)
  Sender: FDA-Public Use
  Company Number: FR-AUROBINDO-AUR-APL-2017-45060

PATIENT
  Age: 83 Year
  Sex: Male

DRUGS (13)
  1. DOXORUBICIN [Suspect]
     Active Substance: DOXORUBICIN
     Indication: Hodgkin^s disease
     Dosage: UNK UNK, CYCLICAL
     Route: 065
  2. PREDNISONE [Suspect]
     Active Substance: PREDNISONE
     Indication: Hodgkin^s disease
     Dosage: UNK UNK, CYCLICAL
     Route: 065
  3. PREDNISONE [Suspect]
     Active Substance: PREDNISONE
     Dosage: UNK, 5 CYCLE
     Route: 065
  4. ADRIAMYCIN [Suspect]
     Active Substance: DOXORUBICIN HYDROCHLORIDE
     Indication: Product used for unknown indication
     Dosage: UNK UNK, CYCLICAL
     Route: 065
  5. BLEOMYCIN [Suspect]
     Active Substance: BLEOMYCIN SULFATE
     Indication: Hodgkin^s disease
     Dosage: UNK UNK, CYCLICAL
     Route: 065
  6. BRENTUXIMAB VEDOTIN [Suspect]
     Active Substance: BRENTUXIMAB VEDOTIN
     Indication: Hodgkin^s disease
     Dosage: 1.35 MILLIGRAM/KILOGRAM, 4 CYCLE EVERY 3 WEEKS
     Route: 065
  7. CYCLOPHOSPHAMIDE [Suspect]
     Active Substance: CYCLOPHOSPHAMIDE
     Indication: Hodgkin^s disease
     Dosage: UNK, 5 CYCLE
     Route: 065
  8. DACARBAZINE [Suspect]
     Active Substance: DACARBAZINE
     Indication: Hodgkin^s disease
     Dosage: UNK UNK, CYCLICAL
     Route: 065
  9. MUSTARGEN [Suspect]
     Active Substance: MECHLORETHAMINE HYDROCHLORIDE
     Indication: Hodgkin^s disease
     Dosage: UNK UNK, CYCLICAL
     Route: 065
  10. PROCARBAZINE [Suspect]
     Active Substance: PROCARBAZINE
     Indication: Hodgkin^s disease
     Dosage: UNK, 6 CYCLE
     Route: 065
  11. VINBLASTINE [Suspect]
     Active Substance: VINBLASTINE
     Indication: Hodgkin^s disease
     Dosage: UNK UNK, CYCLICAL
     Route: 065
  12. VINCRISTINE SULFATE [Suspect]
     Active Substance: VINCRISTINE SULFATE
     Indication: Hodgkin^s disease
     Dosage: UNK, 6 CYCLE
     Route: 065
  13. VINCRISTINE SULFATE [Suspect]
     Active Substance: VINCRISTINE SULFATE
     Dosage: UNK, 5 CYCLE
     Route: 065

REACTIONS (8)
  - Cytomegalovirus test positive [Recovered/Resolved]
  - Arthritis [Unknown]
  - Blindness unilateral [Recovered/Resolved]
  - Cytomegalovirus chorioretinitis [Recovered/Resolved]
  - Neutropenia [Unknown]
  - Therapeutic response decreased [Unknown]
  - Blindness [Recovering/Resolving]
  - Toxicity to various agents [Unknown]
